FAERS Safety Report 13255964 (Version 1)
Quarter: 2017Q1

REPORT INFORMATION
  Report Type: Report from Study
  Country: US (occurrence: US)
  Receive Date: 20170221
  Receipt Date: 20170221
  Transmission Date: 20170428
  Serious: Yes (Hospitalization, Other)
  Sender: FDA-Public Use
  Company Number: US-009507513-1702USA007886

PATIENT
  Age: 72 Year
  Sex: Male

DRUGS (1)
  1. JANUVIA [Suspect]
     Active Substance: SITAGLIPTIN PHOSPHATE
     Route: 048

REACTIONS (5)
  - Neoplasm malignant [Unknown]
  - Cardiac disorder [Unknown]
  - Blood glucose increased [Unknown]
  - Adverse event [Unknown]
  - Visual impairment [Unknown]

NARRATIVE: CASE EVENT DATE: 20170216
